FAERS Safety Report 25234300 (Version 1)
Quarter: 2025Q2

REPORT INFORMATION
  Report Type: Spontaneous
  Country: CA (occurrence: CA)
  Receive Date: 20250424
  Receipt Date: 20250424
  Transmission Date: 20250716
  Serious: Yes (Other)
  Sender: JOHNSON AND JOHNSON
  Company Number: CA-JNJFOC-20250417976

PATIENT
  Age: 38 Year
  Weight: 148 kg

DRUGS (3)
  1. INVEGA SUSTENNA [Suspect]
     Active Substance: PALIPERIDONE PALMITATE
     Indication: Product used for unknown indication
     Route: 030
  2. INVEGA SUSTENNA [Suspect]
     Active Substance: PALIPERIDONE PALMITATE
  3. INVEGA SUSTENNA [Suspect]
     Active Substance: PALIPERIDONE PALMITATE

REACTIONS (12)
  - Hallucination, visual [Unknown]
  - Syncope [Unknown]
  - Eye movement disorder [Unknown]
  - Emergency care [Unknown]
  - Depression [Unknown]
  - Fear [Unknown]
  - Sleep disorder [Unknown]
  - Dyspnoea [Unknown]
  - Heart rate decreased [Unknown]
  - Adverse event [Unknown]
  - Dizziness [Unknown]
  - Weight loss poor [Unknown]
